FAERS Safety Report 4936818-6 (Version None)
Quarter: 2006Q1

REPORT INFORMATION
  Report Type: 
  Country: None (occurrence: None)
  Receive Date: 20060307
  Receipt Date: 20050825
  Transmission Date: 20060701
  Serious: Yes (Hospitalization)
  Sender: FDA-Public Use
  Company Number: DE-MERCK-0508DEU00218

PATIENT
  Age: 67 Year
  Sex: Male
  Weight: 72 kg

DRUGS (7)
  1. VIOXX [Suspect]
     Route: 048
     Dates: start: 20031001, end: 20040301
  2. ASPIRIN [Concomitant]
     Route: 065
     Dates: start: 20000101
  3. ATORVASTATIN CALCIUM [Concomitant]
     Route: 065
     Dates: start: 20000101, end: 20050124
  4. BISOPROLOL FUMARATE [Concomitant]
     Route: 065
     Dates: start: 20000101
  5. HYDROCHLOROTHIAZIDE AND VALSARTAN [Suspect]
     Indication: HYPERTENSION
     Route: 048
     Dates: start: 20000101, end: 20041201
  6. ALLOPURINOL [Concomitant]
     Indication: HYPERURICAEMIA
     Route: 065
     Dates: start: 20000101, end: 20050124
  7. PREDNISOLONE [Suspect]
     Indication: POLYMYALGIA
     Route: 065
     Dates: start: 20030112

REACTIONS (4)
  - BLOOD CREATININE INCREASED [None]
  - INFECTION [None]
  - NEPHRITIS INTERSTITIAL [None]
  - PYREXIA [None]
